FAERS Safety Report 4423703-1 (Version None)
Quarter: 2004Q3

REPORT INFORMATION
  Report Type: 
  Country: None (occurrence: None)
  Receive Date: 20040811
  Receipt Date: 20030214
  Transmission Date: 20050211
  Serious: Yes (Other)
  Sender: FDA-Public Use
  Company Number: GB-MERCK-0302GBR00126

PATIENT
  Age: 66 Year
  Sex: Female
  Weight: 63 kg

DRUGS (2)
  1. FOSAMAX [Suspect]
     Indication: OSTEOPOROSIS
     Route: 048
  2. PHYTONADIONE [Concomitant]
     Indication: PANCREATITIS CHRONIC
     Route: 065
     Dates: start: 20001023

REACTIONS (2)
  - GASTRITIS [None]
  - HAEMATEMESIS [None]
